FAERS Safety Report 8896242 (Version 1)
Quarter: 2012Q4

REPORT INFORMATION
  Report Type: Spontaneous
  Country: US (occurrence: None)
  Receive Date: 20121106
  Receipt Date: 20121106
  Transmission Date: 20130627
  Serious: No
  Sender: FDA-Public Use
  Company Number: None

PATIENT
  Sex: Male
  Weight: 95.26 kg

DRUGS (1)
  1. MYRBETRIQ [Suspect]
     Indication: OVERACTIVE BLADDER
     Dosage: 25 MG 1x a day mouth
     Route: 048
     Dates: start: 20121102

REACTIONS (3)
  - Dry eye [None]
  - Dry throat [None]
  - Dry mouth [None]
